FAERS Safety Report 8131761-6 (Version None)
Quarter: 2012Q1

REPORT INFORMATION
  Report Type: 
  Country: None (occurrence: None)
  Receive Date: 20120208
  Receipt Date: 20120130
  Transmission Date: 20120608
  Serious: Yes (Other)
  Sender: FDA-Public Use
  Company Number: AUR-APL-2012-00826

PATIENT
  Age: 21 Year
  Sex: Female

DRUGS (7)
  1. LEVETIRACETAM [Suspect]
     Indication: CONVULSION
  2. OXCARBAZEPINE [Suspect]
     Indication: CONVULSION
  3. TOPIRAMATE [Suspect]
     Indication: CONVULSION
  4. CLONAZEPAM [Suspect]
     Indication: CONVULSION
  5. ZONISAMIDE [Suspect]
     Indication: CONVULSION
  6. LAMOTRIGINE [Suspect]
     Indication: CONVULSION
  7. DIVALPROEX SODIUM [Suspect]
     Indication: CONVULSION

REACTIONS (4)
  - CONDITION AGGRAVATED [None]
  - DRUG RESISTANCE [None]
  - DRUG INEFFECTIVE [None]
  - CONVULSION [None]
